FAERS Safety Report 18585686 (Version 5)
Quarter: 2021Q3

REPORT INFORMATION
  Report Type: Report from Study
  Country: US (occurrence: US)
  Receive Date: 20201207
  Receipt Date: 20210816
  Transmission Date: 20211014
  Serious: Yes (Other)
  Sender: FDA-Public Use
  Company Number: US-TAKEDA-2020TUS054595

PATIENT
  Age: 74 Year
  Sex: Female
  Weight: 72 kg

DRUGS (28)
  1. CELLCEPT [Concomitant]
     Active Substance: MYCOPHENOLATE MOFETIL\MYCOPHENOLATE MOFETIL HYDROCHLORIDE
  2. OMEPRAZOLE. [Concomitant]
     Active Substance: OMEPRAZOLE
  3. NORMAL SALINE [Concomitant]
     Active Substance: SODIUM CHLORIDE
  4. METFORMIN [Concomitant]
     Active Substance: METFORMIN HYDROCHLORIDE
  5. LANSOPRAZOLE. [Concomitant]
     Active Substance: LANSOPRAZOLE
  6. SODIUM CHLORIDE. [Concomitant]
     Active Substance: SODIUM CHLORIDE
  7. LOSARTAN. [Concomitant]
     Active Substance: LOSARTAN
  8. CHOLECALCIFEROL [Concomitant]
     Active Substance: CHOLECALCIFEROL
  9. FISH OIL [Concomitant]
     Active Substance: FISH OIL
  10. ACETAMINOPHEN. [Concomitant]
     Active Substance: ACETAMINOPHEN
  11. DIPHENHYDRAMINE. [Concomitant]
     Active Substance: DIPHENHYDRAMINE
  12. HEPARIN [Concomitant]
     Active Substance: HEPARIN SODIUM
  13. LIDOCAINE. [Concomitant]
     Active Substance: LIDOCAINE
  14. METOPROLOL. [Concomitant]
     Active Substance: METOPROLOL
  15. TYLENOL 8HR [Concomitant]
     Active Substance: ACETAMINOPHEN
  16. PNEUMOVAX 23 [Concomitant]
     Active Substance: PNEUMOCOCCAL VACCINE, POLYVALENT 23
  17. GLIMEPIRIDE. [Concomitant]
     Active Substance: GLIMEPIRIDE
  18. PRALUENT [Concomitant]
     Active Substance: ALIROCUMAB
  19. EPINEPHRINE. [Concomitant]
     Active Substance: EPINEPHRINE
  20. IRON [Concomitant]
     Active Substance: IRON
  21. HUMAN NORMAL IMMUNOGLOBULIN; LIQUID [Suspect]
     Active Substance: HUMAN IMMUNOGLOBULIN G
     Indication: POLYMYOSITIS
     Dosage: 50 MILLIGRAM, Q6WEEKS
     Route: 065
     Dates: start: 20200620
  22. FLUBLOK QUADRIVALENT NOS [Concomitant]
     Active Substance: INFLUENZA VIRUS VACCINE
  23. FLUOCINOLONE [Concomitant]
     Active Substance: FLUOCINOLONE
  24. HUMAN NORMAL IMMUNOGLOBULIN; LIQUID [Suspect]
     Active Substance: HUMAN IMMUNOGLOBULIN G
     Indication: ILLNESS
     Dosage: 1000 MILLIGRAM/KILOGRAM, Q8WEEKS
     Route: 042
     Dates: start: 20200620
  25. SPIRONOLACTONE. [Concomitant]
     Active Substance: SPIRONOLACTONE
  26. ASPIRIN (E.C.) [Concomitant]
     Active Substance: ASPIRIN
  27. NITROGLYCERIN. [Concomitant]
     Active Substance: NITROGLYCERIN
  28. AMLODIPINE [Concomitant]
     Active Substance: AMLODIPINE BESYLATE

REACTIONS (6)
  - COVID-19 [Unknown]
  - Kidney infection [Unknown]
  - Product use in unapproved indication [Unknown]
  - Headache [Unknown]
  - Anaemia [Unknown]
  - Product dose omission issue [Unknown]

NARRATIVE: CASE EVENT DATE: 20201112
